FAERS Safety Report 4830325-7 (Version None)
Quarter: 2005Q4

REPORT INFORMATION
  Report Type: 
  Country: None (occurrence: None)
  Receive Date: 20051115
  Receipt Date: 20051102
  Transmission Date: 20060501
  Serious: Yes (Hospitalization, Other)
  Sender: FDA-Public Use
  Company Number: 2005153406

PATIENT
  Age: 90 Year
  Sex: Female

DRUGS (4)
  1. GABAPENTIN [Suspect]
     Indication: NEURALGIA
     Dosage: ORAL
     Route: 048
  2. LORMETAZEPAM (LORMETAZEPAM) [Concomitant]
  3. ISCOVER (CLOPIDOGREL SULFATE) [Concomitant]
  4. LAXATIVES (LAXATIVES) [Concomitant]

REACTIONS (2)
  - MYOCARDIAL INFARCTION [None]
  - PERIPHERAL ISCHAEMIA [None]
